FAERS Safety Report 10083631 (Version 2)
Quarter: 2014Q2

REPORT INFORMATION
  Report Type: Spontaneous
  Country: US (occurrence: US)
  Receive Date: 20140417
  Receipt Date: 20140521
  Transmission Date: 20141212
  Serious: Yes (Hospitalization)
  Sender: FDA-Public Use
  Company Number: US-PFIZER INC-2014103881

PATIENT
  Age: 79 Year
  Sex: Female
  Weight: 140.59 kg

DRUGS (4)
  1. VFEND [Suspect]
     Indication: FUNGAL INFECTION
     Dosage: 400 MG, 2X/DAY
     Dates: start: 201403, end: 20140405
  2. SPIRONOLACTONE [Concomitant]
     Indication: HYPERTENSION
     Dosage: 25 MG, DAILY
  3. PRAVASTATIN [Concomitant]
     Indication: BLOOD CHOLESTEROL INCREASED
     Dosage: 40 MG, DAILY
  4. HUMALOG [Concomitant]
     Indication: DIABETES MELLITUS
     Dosage: UNK

REACTIONS (3)
  - Hallucination [Recovered/Resolved]
  - Abnormal dreams [Recovered/Resolved]
  - Bedridden [Recovered/Resolved]
